FAERS Safety Report 19182034 (Version 7)
Quarter: 2024Q3

REPORT INFORMATION
  Report Type: Spontaneous
  Country: US (occurrence: US)
  Receive Date: 20210426
  Receipt Date: 20240819
  Transmission Date: 20241017
  Serious: Yes (Life-Threatening, Other)
  Sender: PFIZER
  Company Number: US-PFIZER INC-2021406327

PATIENT
  Age: 81 Year
  Sex: Female
  Weight: 61.23 kg

DRUGS (5)
  1. XELJANZ [Suspect]
     Active Substance: TOFACITINIB CITRATE
     Indication: Pain
     Dosage: 5 MG
     Route: 048
  2. XELJANZ [Suspect]
     Active Substance: TOFACITINIB CITRATE
     Indication: Arthralgia
  3. XELJANZ [Suspect]
     Active Substance: TOFACITINIB CITRATE
     Indication: Joint lock
  4. RETINOL [Concomitant]
     Active Substance: RETINOL
     Indication: Immune system disorder
  5. VITAMINS NOS [Concomitant]
     Active Substance: VITAMINS

REACTIONS (11)
  - Near death experience [Unknown]
  - Neoplasm malignant [Unknown]
  - Infection [Unknown]
  - Impaired healing [Unknown]
  - Off label use [Unknown]
  - Memory impairment [Unknown]
  - Hand deformity [Unknown]
  - Gait disturbance [Unknown]
  - Skin laceration [Unknown]
  - Weight decreased [Unknown]
  - Pain [Recovering/Resolving]
